FAERS Safety Report 17744047 (Version 1)
Quarter: 2020Q2

REPORT INFORMATION
  Report Type: Spontaneous
  Country: US (occurrence: US)
  Receive Date: 20200504
  Receipt Date: 20200504
  Transmission Date: 20200714
  Serious: Yes (Other)
  Sender: FDA-Public Use
  Company Number: US-AMGEN-USASP2020069465

PATIENT
  Sex: Female

DRUGS (2)
  1. PROLIA [Suspect]
     Active Substance: DENOSUMAB
     Indication: OSTEOPOROSIS POSTMENOPAUSAL
     Dosage: 60 MILLIGRAM
     Route: 065
  2. CALCIUM [Concomitant]
     Active Substance: CALCIUM
     Dosage: UNK

REACTIONS (11)
  - Dry skin [Unknown]
  - Balance disorder [Unknown]
  - Asthenia [Unknown]
  - Lower limb fracture [Unknown]
  - Stress [Unknown]
  - Ligament sprain [Unknown]
  - Adverse event [Unknown]
  - Stress fracture [Unknown]
  - Fall [Unknown]
  - Lymphoedema [Unknown]
  - Ear disorder [Unknown]
